FAERS Safety Report 8848251 (Version 3)
Quarter: 2013Q1

REPORT INFORMATION
  Report Type: Report from Study
  Country: CA (occurrence: CA)
  Receive Date: 20121018
  Receipt Date: 20130111
  Transmission Date: 20140127
  Serious: Yes (Death, Other)
  Sender: FDA-Public Use
  Company Number: CA-ROCHE-1138147

PATIENT
  Sex: Female
  Weight: 79.45 kg

DRUGS (5)
  1. BEVACIZUMAB [Suspect]
     Indication: GLIOBLASTOMA
     Route: 042
     Dates: start: 20120907, end: 20120928
  2. EFFEXOR [Concomitant]
  3. DECADRON [Concomitant]
  4. DIVALPROEX [Concomitant]
  5. RANITIDINE [Concomitant]

REACTIONS (3)
  - Platelet count decreased [Unknown]
  - Disease progression [Fatal]
  - Drug effect decreased [Fatal]
